FAERS Safety Report 5330893-5 (Version None)
Quarter: 2007Q2

REPORT INFORMATION
  Report Type: 
  Country: None (occurrence: None)
  Receive Date: 20070516
  Receipt Date: 20070509
  Transmission Date: 20071010
  Serious: Yes (Hospitalization)
  Sender: FDA-Public Use
  Company Number: XOLEGE0700002

PATIENT
  Age: 84 Year
  Sex: Male

DRUGS (2)
  1. XOLEGEL [Suspect]
  2. SIMVASTATIN [Suspect]

REACTIONS (5)
  - BLOOD URINE PRESENT [None]
  - DRUG INTERACTION [None]
  - LIVER FUNCTION TEST ABNORMAL [None]
  - RENAL IMPAIRMENT [None]
  - RHABDOMYOLYSIS [None]
